FAERS Safety Report 16035024 (Version 3)
Quarter: 2022Q1

REPORT INFORMATION
  Report Type: Report from Study
  Country: US (occurrence: US)
  Receive Date: 20190305
  Receipt Date: 20220329
  Transmission Date: 20220423
  Serious: Yes (Other)
  Sender: FDA-Public Use
  Company Number: US-PFIZER INC-2019091898

PATIENT

DRUGS (8)
  1. GEMCITABINE HYDROCHLORIDE [Suspect]
     Active Substance: GEMCITABINE HYDROCHLORIDE
     Indication: Cholangiocarcinoma
     Dosage: 800 MG/M2, CYCLIC (EVERY 2 WEEKS, AFTER PUMP PLACEMENT ON A 4-WEEK CYCLE)
     Route: 025
  2. OXALIPLATIN [Suspect]
     Active Substance: OXALIPLATIN
     Indication: Cholangiocarcinoma
     Dosage: 85 MG/M2, CYCLIC(EVERY 2 WEEKS, AFTER PUMP PLACEMENT ON A 4-WEEK CYCLE)
     Route: 025
  3. DEXAMETHASONE [Suspect]
     Active Substance: DEXAMETHASONE
     Indication: Cholangiocarcinoma
     Dosage: UNK, CYCLIC (EVERY 2 WEEKS, AFTER PUMP PLACEMENT ON A 4-WEEK CYCLE)
     Route: 025
  4. DEXAMETHASONE [Suspect]
     Active Substance: DEXAMETHASONE
     Dosage: UNK, CYCLIC (INFUSION, 30 MG/PUMP FLOW RATE; EITHER 23 OR 25 MG)
     Route: 025
  5. FLOXURIDINE [Suspect]
     Active Substance: FLOXURIDINE
     Indication: Cholangiocarcinoma
     Dosage: UNK, CYCLIC (EVERY 2 WEEKS, AFTER PUMP PLACEMENT ON A 4-WEEK CYCLE)
     Route: 025
  6. FLOXURIDINE [Suspect]
     Active Substance: FLOXURIDINE
     Dosage: UNK, CYCLIC (INFUSION, [0.12 MG/KG X KG X 30]/PUMP FLOW RATE)
     Route: 025
  7. HEPARIN [Concomitant]
     Active Substance: HEPARIN SODIUM
     Dosage: 3000 IU, UNK
  8. HEPARIN SODIUM [Concomitant]
     Active Substance: HEPARIN SODIUM
     Dosage: 30 ML, ON DAY 1 OF A 14-DAY INFUSION

REACTIONS (1)
  - Portal hypertension [Unknown]
